FAERS Safety Report 10161782 (Version 2)
Quarter: 2014Q2

REPORT INFORMATION
  Report Type: Spontaneous
  Country: CH (occurrence: None)
  Receive Date: 20140507
  Receipt Date: 20140613
  Transmission Date: 20141212
  Serious: Yes (Other)
  Sender: FDA-Public Use
  Company Number: 20140235

PATIENT
  Age: 21 Year
  Sex: Female
  Weight: 60 kg

DRUGS (1)
  1. FERINJECT [Suspect]
     Indication: IRON DEFICIENCY ANAEMIA
     Dosage: 1 IN 1 TOTAL
     Route: 041
     Dates: start: 20140228, end: 20140228

REACTIONS (6)
  - Urticaria [None]
  - Local swelling [None]
  - Feeling hot [None]
  - Headache [None]
  - Palpitations [None]
  - Peripheral swelling [None]
